FAERS Safety Report 19576914 (Version 1)
Quarter: 2021Q3

REPORT INFORMATION
  Report Type: Spontaneous
  Country: DE (occurrence: DE)
  Receive Date: 20210719
  Receipt Date: 20210719
  Transmission Date: 20211014
  Serious: Yes (Other)
  Sender: FDA-Public Use
  Company Number: DE-ASTRAZENECA-2021A605372

PATIENT
  Age: 39 Year
  Sex: Male

DRUGS (9)
  1. BISOPROLOL [Concomitant]
     Active Substance: BISOPROLOL
     Dosage: 2.5 , DAILY
     Route: 065
  2. PRADAXA [Concomitant]
     Active Substance: DABIGATRAN ETEXILATE MESYLATE
     Indication: EMBOLISM
     Dosage: 150, TWO TIMES A DAY
     Route: 065
  3. DABIGATRAN [Concomitant]
     Active Substance: DABIGATRAN
     Route: 065
  4. ENTRESTO [Concomitant]
     Active Substance: SACUBITRIL\VALSARTAN
     Dosage: 49/51 ,DAILY
     Route: 065
  5. BRILIQUE [Suspect]
     Active Substance: TICAGRELOR
     Route: 048
  6. EPLERENONE. [Concomitant]
     Active Substance: EPLERENONE
     Dosage: 25, DAILY
     Route: 065
  7. EZETIMIB [Concomitant]
     Active Substance: EZETIMIBE
     Dosage: 10, DAILY
     Route: 065
  8. DAPAGLIFLOZIN. [Concomitant]
     Active Substance: DAPAGLIFLOZIN
     Dosage: 10, DAILY
     Route: 065
  9. ROSUVASTATIN. [Concomitant]
     Active Substance: ROSUVASTATIN
     Indication: LOW DENSITY LIPOPROTEIN
     Dosage: 20, DAILY
     Route: 065

REACTIONS (3)
  - Cardiac failure [Unknown]
  - Aneurysm [Unknown]
  - Coronary artery disease [Unknown]
